FAERS Safety Report 7641597-8 (Version None)
Quarter: 2011Q3

REPORT INFORMATION
  Report Type: 
  Country: None (occurrence: None)
  Receive Date: 20110728
  Receipt Date: 20110711
  Transmission Date: 20111222
  Serious: No
  Sender: FDA-Public Use
  Company Number: US-B.I. PHARMACEUTICALS,INC./RIDGEFIELD-2011-BP-17439BP

PATIENT
  Age: 90 Year
  Sex: Female

DRUGS (9)
  1. SPIRIVA [Suspect]
     Route: 055
     Dates: start: 20110501
  2. VICODIN [Concomitant]
     Indication: BACK PAIN
  3. SPIRIVA [Suspect]
     Indication: CHRONIC OBSTRUCTIVE PULMONARY DISEASE
     Dosage: 18 MCG
     Route: 055
     Dates: start: 20110501, end: 20110501
  4. LASIX [Concomitant]
     Indication: FLUID RETENTION
     Dosage: 20 MG
     Dates: start: 20000101
  5. SYNTHROID [Concomitant]
     Indication: HYPOTHYROIDISM
     Dosage: 100 MCG
  6. LISINOPRIL [Concomitant]
     Indication: HYPERTENSION
     Dosage: 20 MG
     Dates: start: 19700101
  7. ASPIRIN [Concomitant]
     Indication: ROUTINE HEALTH MAINTENANCE
     Dosage: 81 MG
     Dates: start: 19700101
  8. VICODIN [Concomitant]
     Indication: ARTHRITIS
     Dates: start: 20010101
  9. GLYCOLAX [Concomitant]
     Indication: ROUTINE HEALTH MAINTENANCE
     Dosage: 17 G

REACTIONS (2)
  - HEADACHE [None]
  - DYSPNOEA [None]
